FAERS Safety Report 7185835-7 (Version None)
Quarter: 2010Q4

REPORT INFORMATION
  Report Type: 
  Country: None (occurrence: None)
  Receive Date: 20101123
  Receipt Date: 20100806
  Transmission Date: 20110411
  Serious: No
  Sender: FDA-Public Use
  Company Number: 016986

PATIENT
  Sex: Female
  Weight: 84 kg

DRUGS (9)
  1. CIMZIA [Suspect]
     Indication: CROHN'S DISEASE
     Dosage: (400 MG 1X/MONTH SUBCUTANEOUS)
     Route: 058
     Dates: start: 20091101
  2. VITAMIN D [Concomitant]
  3. ZOVIRAX /00587301/ [Concomitant]
  4. FOLIC ACID [Concomitant]
  5. FLEXERIL [Concomitant]
  6. PRILOSEC [Concomitant]
  7. PROCARDIA XL [Concomitant]
  8. ASPIRIN [Concomitant]
  9. TOPAMAX [Concomitant]

REACTIONS (2)
  - IMPAIRED HEALING [None]
  - STRESS FRACTURE [None]
